FAERS Safety Report 7131453-6 (Version None)
Quarter: 2010Q4

REPORT INFORMATION
  Report Type: 
  Country: None (occurrence: None)
  Receive Date: 20101201
  Receipt Date: 20100802
  Transmission Date: 20110411
  Serious: Yes (Other)
  Sender: FDA-Public Use
  Company Number: PHHY2010US51234

PATIENT

DRUGS (1)
  1. RECLAST [Suspect]

REACTIONS (2)
  - OSTEONECROSIS OF JAW [None]
  - POOR PERSONAL HYGIENE [None]
